FAERS Safety Report 9305294 (Version 1)
Quarter: 2013Q2

REPORT INFORMATION
  Report Type: Spontaneous
  Country: US (occurrence: US)
  Receive Date: 20130523
  Receipt Date: 20130523
  Transmission Date: 20140414
  Serious: Yes (Disabling, Other)
  Sender: FDA-Public Use
  Company Number: US-ASTELLAS-2013US005321

PATIENT
  Sex: Male

DRUGS (1)
  1. PROGRAF [Suspect]
     Indication: TRANSPLANT
     Dosage: 1 MG, UNKNOWN/D
     Route: 048

REACTIONS (3)
  - Surgery [Unknown]
  - Diabetes mellitus [Unknown]
  - Memory impairment [Unknown]
